FAERS Safety Report 19739621 (Version 1)
Quarter: 2021Q3

REPORT INFORMATION
  Report Type: Spontaneous
  Country: AU (occurrence: AU)
  Receive Date: 20210823
  Receipt Date: 20210823
  Transmission Date: 20211014
  Serious: Yes (Other)
  Sender: FDA-Public Use
  Company Number: AU-009507513-2108AUS005559

PATIENT
  Age: 80 Year
  Sex: Male

DRUGS (4)
  1. PERINDOPRIL [Suspect]
     Active Substance: PERINDOPRIL
     Indication: HYPERTENSION
     Dosage: DOSE: 2.5 MILLIGRAM , INTERVAL: 1 DAY, ROUTE OF ADMINISTRATION: INFORMATION NOT PROVIDED BY SPONSOR
  2. SITAGLIPTIN PHOSPHATE [Suspect]
     Active Substance: SITAGLIPTIN PHOSPHATE
     Indication: TYPE 2 DIABETES MELLITUS
     Dosage: DOSE: 100 MILLIGRAM , INTERVAL: 1 DAY , ROUTE OF ADMINISTRATION: INFORMATION NOT PROVIDED BY SPONSOR
  3. METFORMIN [Suspect]
     Active Substance: METFORMIN HYDROCHLORIDE
     Indication: TYPE 2 DIABETES MELLITUS
     Dosage: DOSE: 1000 MILLIGRAM , INTERVAL: 1 DAY, ROUTE OF ADMINISTRATION: INFORMATION NOT PROVIDED BY SPONSOR
  4. CHOLECALCIFEROL [Suspect]
     Active Substance: CHOLECALCIFEROL
     Indication: VITAMIN D DEFICIENCY
     Dosage: DOSE: 125 MICROGRAM , ROUTE OF ADMINISTRATION: ORAL
     Route: 048

REACTIONS (1)
  - Drug reaction with eosinophilia and systemic symptoms [Recovered/Resolved]
